FAERS Safety Report 10192224 (Version 1)
Quarter: 2014Q2

REPORT INFORMATION
  Report Type: Spontaneous
  Country: US (occurrence: US)
  Receive Date: 20140523
  Receipt Date: 20140523
  Transmission Date: 20141212
  Serious: No
  Sender: FDA-Public Use
  Company Number: US-AMARIN PHARMA, INC.-2014AMR000014

PATIENT
  Sex: Male

DRUGS (1)
  1. VASCEPA [Suspect]
     Indication: PRODUCT USED FOR UNKNOWN INDICATION
     Route: 065

REACTIONS (2)
  - Oral discomfort [Unknown]
  - Product physical issue [Recovered/Resolved]
